FAERS Safety Report 7466329-8 (Version None)
Quarter: 2011Q2

REPORT INFORMATION
  Report Type: 
  Country: None (occurrence: None)
  Receive Date: 20110509
  Receipt Date: 20100721
  Transmission Date: 20111010
  Serious: No
  Sender: FDA-Public Use
  Company Number: US-ALEXION-A201000857

PATIENT
  Sex: Female

DRUGS (14)
  1. DARVOCET-N 50 [Concomitant]
     Dosage: 100 MG, QD PRN
  2. VITAMIN B12                        /00056201/ [Concomitant]
     Dosage: 1000 UG, QD
  3. SOLIRIS [Suspect]
     Indication: PAROXYSMAL NOCTURNAL HAEMOGLOBINURIA
     Dosage: 900 MG, UNK
     Route: 042
  4. ACETAMINOPHEN AND HYDROCODONE BITARTRATE [Concomitant]
     Dosage: 5 MG, QD PRN
  5. ANTIHISTAMINE ALLERGY RELIEF [Concomitant]
     Dosage: UNK
  6. VITAMIN C                          /00008001/ [Concomitant]
     Dosage: 1000 MG, QD
  7. AMITRIPTYLINE HCL [Concomitant]
     Dosage: 50 MG, QD (QHS)
  8. IMITREX [Concomitant]
     Dosage: 100 MG, QD PRN
  9. NEURONTIN [Concomitant]
     Dosage: 800 MG, BID
  10. PROPRANOLOL HYDROCHLORIDE [Concomitant]
     Dosage: 80 MG, BID
  11. ATENOLOL [Concomitant]
     Dosage: 100 MG, BID
  12. LEVOXYL [Concomitant]
     Dosage: 0.1 Q, QOD
  13. LISINOPRIL [Concomitant]
     Dosage: 20 MG, QD
  14. FOLIC ACID [Concomitant]
     Dosage: 1 MG, QD

REACTIONS (5)
  - BACK PAIN [None]
  - BLOOD LACTATE DEHYDROGENASE INCREASED [None]
  - FATIGUE [None]
  - HAEMOGLOBIN DECREASED [None]
  - URINE COLOUR ABNORMAL [None]
